FAERS Safety Report 7482045-0 (Version None)
Quarter: 2011Q2

REPORT INFORMATION
  Report Type: 
  Country: None (occurrence: None)
  Receive Date: 20110516
  Receipt Date: 20110502
  Transmission Date: 20111010
  Serious: Yes (Hospitalization)
  Sender: FDA-Public Use
  Company Number: US-CELGENEUS-163-20785-11050551

PATIENT
  Sex: Female
  Weight: 75.3 kg

DRUGS (4)
  1. THALOMID [Suspect]
     Dosage: 50 MILLIGRAM
     Route: 048
     Dates: start: 20070801
  2. THALOMID [Suspect]
     Indication: HYPERCOAGULATION
     Dosage: 50 MILLIGRAM
     Route: 048
     Dates: start: 20060201, end: 20070801
  3. THALOMID [Suspect]
     Dosage: 100 MILLIGRAM
     Route: 048
     Dates: start: 20070801, end: 20070801
  4. THALOMID [Suspect]
     Indication: AMYLOIDOSIS
     Dosage: 100 MILLIGRAM
     Route: 048
     Dates: start: 20060101, end: 20060201

REACTIONS (2)
  - CHRONIC OBSTRUCTIVE PULMONARY DISEASE [None]
  - RESPIRATORY DISTRESS [None]
